FAERS Safety Report 14531295 (Version 1)
Quarter: 2018Q1

REPORT INFORMATION
  Report Type: Spontaneous
  Country: US (occurrence: US)
  Receive Date: 20180213
  Receipt Date: 20180213
  Transmission Date: 20180509
  Serious: No
  Sender: FDA-Public Use
  Company Number: None

PATIENT
  Age: 74 Year
  Sex: Female

DRUGS (9)
  1. ALBUTEROL. [Concomitant]
     Active Substance: ALBUTEROL
  2. CENTRUM [Concomitant]
     Active Substance: VITAMINS
  3. OCALIVA [Suspect]
     Active Substance: OBETICHOLIC ACID
     Indication: PRIMARY BILIARY CHOLANGITIS
     Route: 048
     Dates: start: 20171205
  4. PULMICORT TURBUHALER [Concomitant]
     Active Substance: BUDESONIDE
  5. SODIUM CHLOR [Concomitant]
     Active Substance: SODIUM CHLORIDE
  6. URSODIOL. [Concomitant]
     Active Substance: URSODIOL
  7. EYE DROPS [Concomitant]
     Active Substance: UNSPECIFIED INGREDIENT
  8. VENTOLIN [Concomitant]
     Active Substance: ALBUTEROL SULFATE
  9. ATROVENT [Concomitant]
     Active Substance: IPRATROPIUM BROMIDE

REACTIONS (2)
  - Drug dose omission [None]
  - Gastroenteritis viral [None]

NARRATIVE: CASE EVENT DATE: 20180213
